FAERS Safety Report 7446458-5 (Version None)
Quarter: 2011Q2

REPORT INFORMATION
  Report Type: 
  Country: None (occurrence: None)
  Receive Date: 20110429
  Receipt Date: 20100727
  Transmission Date: 20111010
  Serious: No
  Sender: FDA-Public Use
  Company Number: US-ASTRAZENECA-2010SE33544

PATIENT
  Sex: Female
  Weight: 136.1 kg

DRUGS (3)
  1. NEXIUM [Suspect]
     Indication: GASTROOESOPHAGEAL REFLUX DISEASE
     Route: 048
  2. NEXIUM [Suspect]
     Route: 048
     Dates: start: 20100601
  3. LISINOPRIL [Concomitant]
     Indication: BLOOD PRESSURE

REACTIONS (12)
  - ABDOMINAL DISTENSION [None]
  - MALAISE [None]
  - PRURITUS [None]
  - URINARY TRACT PAIN [None]
  - POLLAKIURIA [None]
  - NOCTURIA [None]
  - INCORRECT DOSE ADMINISTERED [None]
  - FURUNCLE [None]
  - MIGRAINE [None]
  - ERYTHEMA [None]
  - GASTROOESOPHAGEAL REFLUX DISEASE [None]
  - SUPRAPUBIC PAIN [None]
